FAERS Safety Report 16822698 (Version 1)
Quarter: 2019Q3

REPORT INFORMATION
  Report Type: Spontaneous
  Country: CA (occurrence: CA)
  Receive Date: 20190918
  Receipt Date: 20190918
  Transmission Date: 20191005
  Serious: Yes (Other)
  Sender: FDA-Public Use
  Company Number: CA-JNJFOC-20190913467

PATIENT
  Sex: Male

DRUGS (1)
  1. INVEGA SUSTENNA [Suspect]
     Active Substance: PALIPERIDONE PALMITATE
     Indication: SCHIZOPHRENIA
     Route: 030
     Dates: start: 201105, end: 2014

REACTIONS (4)
  - Depression [Recovered/Resolved]
  - Suicidal ideation [Recovered/Resolved]
  - Muscle rigidity [Recovered/Resolved]
  - Fatigue [Recovered/Resolved]
